FAERS Safety Report 26172864 (Version 2)
Quarter: 2025Q4

REPORT INFORMATION
  Report Type: Spontaneous
  Country: EU (occurrence: EU)
  Receive Date: 20251218
  Receipt Date: 20251222
  Transmission Date: 20260117
  Serious: Yes (Hospitalization, Other)
  Sender: Steriscience PTE
  Company Number: EU-MEDO2008-003582

PATIENT
  Age: 25 Year
  Sex: Male

DRUGS (16)
  1. VANCOMYCIN [Suspect]
     Active Substance: VANCOMYCIN
     Indication: Bacterial infection
     Dosage: UNK
     Route: 065
     Dates: start: 20250321, end: 20250328
  2. VANCOMYCIN [Suspect]
     Active Substance: VANCOMYCIN
     Indication: Burn infection
  3. MEROPENEM [Suspect]
     Active Substance: MEROPENEM
     Indication: Bacterial infection
     Dosage: UNK
     Route: 065
     Dates: start: 20250317, end: 20250326
  4. MEROPENEM [Suspect]
     Active Substance: MEROPENEM
     Indication: Burn infection
  5. CEFTRIAXONE [Suspect]
     Active Substance: CEFTRIAXONE
     Indication: Antibiotic prophylaxis
     Dosage: UNK
     Route: 065
     Dates: start: 20250316, end: 20250316
  6. LINEZOLID [Suspect]
     Active Substance: LINEZOLID
     Indication: Bacterial infection
     Dosage: UNK
     Route: 065
     Dates: start: 20250328, end: 20250407
  7. LINEZOLID [Suspect]
     Active Substance: LINEZOLID
     Indication: Burn infection
  8. COLISTIN [Suspect]
     Active Substance: COLISTIN
     Indication: Bacterial infection
     Dosage: UNK
     Route: 065
     Dates: start: 202503, end: 20250401
  9. COLISTIN [Suspect]
     Active Substance: COLISTIN
     Indication: Burn infection
     Dosage: UNK
     Route: 065
     Dates: start: 20250407, end: 20250415
  10. TYGACIL [Suspect]
     Active Substance: TIGECYCLINE
     Indication: Bacterial infection
     Dosage: UNK
     Route: 065
     Dates: start: 20250401, end: 20250407
  11. TYGACIL [Suspect]
     Active Substance: TIGECYCLINE
     Indication: Burn infection
  12. ZERBAXA [Suspect]
     Active Substance: CEFTOLOZANE SULFATE\TAZOBACTAM SODIUM
     Indication: Bacterial infection
     Dosage: UNK
     Route: 065
     Dates: start: 20250401, end: 20250407
  13. ZERBAXA [Suspect]
     Active Substance: CEFTOLOZANE SULFATE\TAZOBACTAM SODIUM
     Indication: Burn infection
  14. CEFOPERAZONE\SULBACTAM [Suspect]
     Active Substance: CEFOPERAZONE\SULBACTAM
     Indication: Bacterial infection
     Dosage: UNK
     Route: 065
     Dates: start: 20250408, end: 20250411
  15. CEFOPERAZONE\SULBACTAM [Suspect]
     Active Substance: CEFOPERAZONE\SULBACTAM
     Indication: Burn infection
  16. CEFIDEROCOL SULFATE TOSYLATE [Concomitant]
     Active Substance: CEFIDEROCOL SULFATE TOSYLATE
     Indication: Product used for unknown indication
     Dosage: UNK
     Route: 065
     Dates: start: 20250412

REACTIONS (3)
  - Bacterial infection [Unknown]
  - Drug ineffective [Unknown]
  - Drug resistance [Unknown]

NARRATIVE: CASE EVENT DATE: 20250101
